FAERS Safety Report 11181349 (Version 1)
Quarter: 2015Q2

REPORT INFORMATION
  Report Type: Spontaneous
  Country: US (occurrence: None)
  Receive Date: 20150610
  Receipt Date: 20150610
  Transmission Date: 20150821
  Serious: Yes (Life-Threatening)
  Sender: FDA-Public Use
  Company Number: None

PATIENT
  Age: 80 Year
  Sex: Male
  Weight: 87.54 kg

DRUGS (4)
  1. HCTZ [Concomitant]
     Active Substance: HYDROCHLOROTHIAZIDE
  2. ALTASE [Concomitant]
  3. PERIOSTAT [Suspect]
     Active Substance: DOXYCYCLINE HYCLATE
     Indication: GINGIVITIS
     Route: 048
     Dates: start: 20110103, end: 20150521
  4. PERIOSTAT [Suspect]
     Active Substance: DOXYCYCLINE HYCLATE
     Indication: DENTAL IMPLANTATION
     Route: 048
     Dates: start: 20110103, end: 20150521

REACTIONS (2)
  - Granulocyte count decreased [None]
  - White blood cell count decreased [None]

NARRATIVE: CASE EVENT DATE: 20150527
